FAERS Safety Report 4425060-3 (Version None)
Quarter: 2004Q3

REPORT INFORMATION
  Report Type: 
  Country: None (occurrence: None)
  Receive Date: 20040813
  Receipt Date: 20040806
  Transmission Date: 20050211
  Serious: Yes (Hospitalization, Other)
  Sender: FDA-Public Use
  Company Number: PHRM2004FR02530

PATIENT
  Age: 70 Year
  Sex: Male

DRUGS (5)
  1. NISIS [Suspect]
     Dosage: 80 MG/DAY
     Route: 048
     Dates: start: 20020101, end: 20040513
  2. DI-ANTALVIC [Suspect]
     Indication: PAIN
     Dosage: 6 CAPS/DAY
     Route: 048
     Dates: start: 20040504, end: 20040508
  3. AUGMENTIN '125' [Suspect]
     Indication: LUNG DISORDER
     Dosage: 2 G/DAY
     Route: 048
     Dates: start: 20040508, end: 20040510
  4. NEURONTIN [Suspect]
     Dosage: 3 DF/DAY
     Route: 048
     Dates: end: 20040508
  5. BISOPROLOL FUMARATE [Concomitant]
     Indication: ESSENTIAL HYPERTENSION
     Route: 048

REACTIONS (6)
  - ALANINE AMINOTRANSFERASE INCREASED [None]
  - ASPARTATE AMINOTRANSFERASE INCREASED [None]
  - BLOOD ALKALINE PHOSPHATASE INCREASED [None]
  - CHOLELITHIASIS [None]
  - GAMMA-GLUTAMYLTRANSFERASE INCREASED [None]
  - HEPATITIS CHOLESTATIC [None]
